FAERS Safety Report 8528537 (Version 14)
Quarter: 2013Q4

REPORT INFORMATION
  Report Type: Report from Study
  Country: BR (occurrence: BR)
  Receive Date: 20120424
  Receipt Date: 20131211
  Transmission Date: 20140711
  Serious: Yes (Hospitalization)
  Sender: FDA-Public Use
  Company Number: BR-ROCHE-1059341

PATIENT
  Age: 61 Year
  Sex: Female
  Weight: 74 kg

DRUGS (11)
  1. BLINDED TOCILIZUMAB [Suspect]
     Indication: RHEUMATOID ARTHRITIS
     Dosage: MOST RECENT DOSE OF BLINDED STUDY DRUG PRIOR TO AE ONSET: 01/FEB/2012
     Route: 058
     Dates: start: 20110928
  2. TOCILIZUMAB [Suspect]
     Indication: RHEUMATOID ARTHRITIS
     Dosage: AUTOINJECTOR
     Route: 058
     Dates: start: 20120314
  3. PREDNISONE [Concomitant]
     Indication: RHEUMATOID ARTHRITIS
     Route: 048
     Dates: start: 2001
  4. LEFLUNOMIDE [Concomitant]
     Indication: RHEUMATOID ARTHRITIS
     Route: 048
     Dates: start: 2008
  5. DICLOFENAC [Concomitant]
     Indication: RHEUMATOID ARTHRITIS
     Route: 048
     Dates: start: 201105
  6. OMEPRAZOLE [Concomitant]
     Route: 048
     Dates: start: 2006
  7. CALCIUM CARBONATE [Concomitant]
     Route: 048
     Dates: start: 20111024
  8. HYDROCHLOROTHIAZIDE [Concomitant]
     Route: 048
     Dates: start: 20111110
  9. DIPYRONE [Concomitant]
     Route: 048
     Dates: start: 20111221
  10. LOSARTAN [Concomitant]
     Route: 048
     Dates: start: 20111124
  11. ATENOLOL [Concomitant]
     Route: 048
     Dates: start: 20111124

REACTIONS (1)
  - Angina pectoris [Recovered/Resolved]
